FAERS Safety Report 18432579 (Version 2)
Quarter: 2021Q2

REPORT INFORMATION
  Report Type: Spontaneous
  Country: US (occurrence: US)
  Receive Date: 20201027
  Receipt Date: 20210409
  Transmission Date: 20210717
  Serious: Yes (Other)
  Sender: FDA-Public Use
  Company Number: US-PURDUE-USA-2020-0169676

PATIENT
  Sex: Male

DRUGS (2)
  1. TYLENOL [Concomitant]
     Active Substance: ACETAMINOPHEN
     Indication: PAIN
     Dosage: UNK
     Route: 048
  2. OXYCONTIN [Suspect]
     Active Substance: OXYCODONE HYDROCHLORIDE
     Indication: PAIN
     Dosage: UNK
     Route: 048

REACTIONS (15)
  - Rectal fissure [Unknown]
  - Loss of consciousness [Unknown]
  - Pain [Unknown]
  - Dyspnoea [Unknown]
  - Headache [Unknown]
  - Stress [Unknown]
  - Internal haemorrhage [Unknown]
  - Overdose [Unknown]
  - Drug dependence [Unknown]
  - Constipation [Unknown]
  - Blood pressure fluctuation [Unknown]
  - Anxiety [Unknown]
  - Weight increased [Unknown]
  - Intestinal perforation [Unknown]
  - Erectile dysfunction [Unknown]
